FAERS Safety Report 9677194 (Version 1)
Quarter: 2013Q4

REPORT INFORMATION
  Report Type: Spontaneous
  Country: US (occurrence: None)
  Receive Date: 20131107
  Receipt Date: 20131107
  Transmission Date: 20140711
  Serious: Yes (Death)
  Sender: FDA-Public Use
  Company Number: None

PATIENT
  Age: 32 Year
  Sex: Female
  Weight: 88.91 kg

DRUGS (3)
  1. GLYBURIDE [Suspect]
     Indication: GESTATIONAL DIABETES
     Dosage: 1
     Route: 048
     Dates: start: 20101021, end: 20101122
  2. GLYBURIDE [Suspect]
     Indication: TYPE 1 DIABETES MELLITUS
     Dosage: 1
     Route: 048
     Dates: start: 20101021, end: 20101122
  3. VISTARIL [Suspect]
     Dosage: 1X
     Dates: start: 20101115

REACTIONS (2)
  - Maternal exposure during pregnancy [None]
  - Foetal death [None]
